FAERS Safety Report 13848641 (Version 1)
Quarter: 2017Q3

REPORT INFORMATION
  Report Type: Spontaneous
  Country: FR (occurrence: FR)
  Receive Date: 20170809
  Receipt Date: 20170809
  Transmission Date: 20171127
  Serious: Yes (Hospitalization)
  Sender: FDA-Public Use
  Company Number: FR-MERCK KGAA-2024367

PATIENT
  Sex: Female
  Weight: 48 kg

DRUGS (2)
  1. NOVOTHYROX [Suspect]
     Active Substance: LEVOTHYROXINE SODIUM
     Indication: PRODUCT USED FOR UNKNOWN INDICATION
  2. TEATROIS [Concomitant]

REACTIONS (5)
  - Blood pressure abnormal [None]
  - Weight decreased [None]
  - Fatigue [None]
  - Heart rate increased [None]
  - Insomnia [None]
